FAERS Safety Report 12474492 (Version 1)
Quarter: 2016Q2

REPORT INFORMATION
  Report Type: Spontaneous
  Country: US (occurrence: US)
  Receive Date: 20160617
  Receipt Date: 20160617
  Transmission Date: 20160815
  Serious: No
  Sender: FDA-Public Use
  Company Number: US-ALVOGEN-2016-ALVOGEN-023249

PATIENT
  Age: 89 Year
  Sex: Female

DRUGS (2)
  1. RIVASTIGMINE. [Suspect]
     Active Substance: RIVASTIGMINE
     Indication: DEMENTIA ALZHEIMER^S TYPE
     Dosage: STRENGTH 9.5 MG
     Route: 062
     Dates: start: 20160315
  2. RIVASTIGMINE. [Suspect]
     Active Substance: RIVASTIGMINE
     Indication: DEMENTIA ALZHEIMER^S TYPE
     Dosage: STRENGTH 9.5 MG
     Route: 062
     Dates: start: 20160315

REACTIONS (3)
  - Application site erythema [Recovering/Resolving]
  - Application site swelling [Not Recovered/Not Resolved]
  - Application site pruritus [Recovering/Resolving]

NARRATIVE: CASE EVENT DATE: 20160316
